FAERS Safety Report 9987762 (Version 2)
Quarter: 2014Q2

REPORT INFORMATION
  Report Type: Spontaneous
  Country: US (occurrence: US)
  Receive Date: 20140307
  Receipt Date: 20140602
  Transmission Date: 20141212
  Serious: No
  Sender: FDA-Public Use
  Company Number: US-AMGEN-USASP2014012835

PATIENT
  Age: 37 Year
  Sex: Female
  Weight: 105.67 kg

DRUGS (5)
  1. ENBREL [Suspect]
     Indication: PSORIATIC ARTHROPATHY
     Dosage: 50 MG, QWK
     Route: 058
     Dates: start: 20140206
  2. ENBREL [Suspect]
     Indication: PSORIASIS
  3. ZYRTEC [Concomitant]
     Indication: HYPERSENSITIVITY
     Dosage: 10 MG, AS NECESSARY
     Route: 048
  4. ALBUTEROL                          /00139501/ [Concomitant]
     Indication: ASTHMA
     Dosage: 108 MUG, AS NECESSARY
  5. MELOXICAM [Concomitant]
     Indication: POLYARTHRITIS
     Dosage: 25 MG, QD
     Route: 048

REACTIONS (2)
  - Injection site pain [Recovered/Resolved]
  - Injection site haemorrhage [Recovered/Resolved]
